FAERS Safety Report 21098406 (Version 1)
Quarter: 2022Q3

REPORT INFORMATION
  Report Type: Spontaneous
  Country: US (occurrence: US)
  Receive Date: 20220719
  Receipt Date: 20220719
  Transmission Date: 20221027
  Serious: Yes (Other)
  Sender: FDA-Public Use
  Company Number: US-STRIDES ARCOLAB LIMITED-2022SP009053

PATIENT
  Age: 15 Year
  Sex: Female

DRUGS (1)
  1. TACROLIMUS [Suspect]
     Active Substance: TACROLIMUS
     Indication: Liver transplant
     Dosage: UNK
     Route: 065

REACTIONS (5)
  - Anterior chamber cleavage syndrome [Unknown]
  - Macular degeneration [Unknown]
  - Retinal disorder [Unknown]
  - Cataract subcapsular [Unknown]
  - Maculopathy [Unknown]
